FAERS Safety Report 16655590 (Version 1)
Quarter: 2019Q3

REPORT INFORMATION
  Report Type: Spontaneous
  Country: IT (occurrence: IT)
  Receive Date: 20190801
  Receipt Date: 20190801
  Transmission Date: 20191004
  Serious: Yes (Death)
  Sender: FDA-Public Use
  Company Number: IT-TEVA-2019-IT-1086383

PATIENT
  Age: 63 Year
  Sex: Female
  Weight: 65 kg

DRUGS (1)
  1. CAPECITABINE. [Suspect]
     Active Substance: CAPECITABINE
     Indication: RECTAL CANCER
     Dosage: 4300 MG/DAYS
     Route: 048
     Dates: start: 20180710, end: 20180716

REACTIONS (5)
  - Sepsis [Fatal]
  - Diarrhoea [Fatal]
  - Febrile neutropenia [Fatal]
  - Renal failure [Fatal]
  - Stomatitis [Fatal]

NARRATIVE: CASE EVENT DATE: 20180717
